FAERS Safety Report 6744556-2 (Version None)
Quarter: 2010Q2

REPORT INFORMATION
  Report Type: 
  Country: None (occurrence: None)
  Receive Date: 20100527
  Receipt Date: 20100513
  Transmission Date: 20101027
  Serious: Yes (Hospitalization, Other)
  Sender: FDA-Public Use
  Company Number: PHHY2010CA31184

PATIENT
  Sex: Male

DRUGS (1)
  1. SANDOSTATIN LAR [Suspect]
     Indication: HEPATIC CIRRHOSIS
     Dosage: 20 MG, EVERY 4 WEEKS
     Route: 030
     Dates: start: 20091026

REACTIONS (2)
  - COLOSTOMY CLOSURE [None]
  - ILEOSTOMY CLOSURE [None]
